FAERS Safety Report 9475725 (Version 1)
Quarter: 2013Q3

REPORT INFORMATION
  Report Type: Spontaneous
  Country: CH (occurrence: CH)
  Receive Date: 20130826
  Receipt Date: 20130826
  Transmission Date: 20140515
  Serious: Yes (Hospitalization)
  Sender: FDA-Public Use
  Company Number: CH-ROCHE-1265468

PATIENT
  Age: 64 Year
  Sex: Female

DRUGS (14)
  1. BONVIVA [Suspect]
     Indication: OSTEOPOROSIS
     Route: 040
     Dates: start: 200705, end: 200803
  2. ACLASTA [Suspect]
     Indication: OSTEOPOROSIS
     Route: 042
     Dates: start: 200905, end: 201104
  3. FOSAMAX [Suspect]
     Indication: OSTEOPOROSIS
     Route: 065
     Dates: start: 200503, end: 200705
  4. PROLIA [Suspect]
     Indication: OSTEOPOROSIS
     Dosage: LAST DOSE RECEVIED ON 01/MAR/2013
     Route: 058
     Dates: start: 201112
  5. CALCIMAGON-D3 [Concomitant]
  6. CLEXANE [Concomitant]
     Route: 065
  7. MOTILIUM (SWITZERLAND) [Concomitant]
     Route: 065
  8. NEXIUM [Concomitant]
     Route: 065
  9. GYNO-TARDYFERON (UKRAINE) [Concomitant]
     Dosage: 1 TABLET PER DAY
     Route: 065
  10. SUPRADYN [Concomitant]
     Dosage: 1 TAB PER DAY (1DF)
     Route: 065
  11. DAFALGAN [Concomitant]
     Route: 065
  12. LIVIAL [Concomitant]
     Route: 065
     Dates: start: 2004
  13. SIRDALUD [Concomitant]
     Route: 048
  14. OMEGA 3 [Concomitant]
     Dosage: 1 TAB PER DAY
     Route: 065

REACTIONS (1)
  - Fracture delayed union [Not Recovered/Not Resolved]
